FAERS Safety Report 9107493 (Version 2)
Quarter: 2013Q1

REPORT INFORMATION
  Report Type: Spontaneous
  Country: JP (occurrence: JP)
  Receive Date: 20130221
  Receipt Date: 20130306
  Transmission Date: 20140127
  Serious: Yes (Life-Threatening, Hospitalization, Other)
  Sender: FDA-Public Use
  Company Number: JP-PFIZER INC-2012329949

PATIENT
  Age: 62 Year
  Sex: Male

DRUGS (4)
  1. INLYTA [Suspect]
     Indication: METASTATIC RENAL CELL CARCINOMA
     Dosage: 10 MG, 1X/DAY
     Route: 048
     Dates: start: 20121115, end: 20121227
  2. RANMARK [Concomitant]
     Dosage: UNK
  3. OXYCONTIN [Concomitant]
     Dosage: UNK
  4. OXYCONTIN [Concomitant]
     Dosage: 40 MG, 1X/DAY

REACTIONS (6)
  - Large intestine perforation [Recovering/Resolving]
  - Diverticulum intestinal [Recovering/Resolving]
  - Tumour haemorrhage [Recovering/Resolving]
  - Hypothyroidism [Recovering/Resolving]
  - Disease progression [Unknown]
  - Metastatic renal cell carcinoma [Unknown]
